FAERS Safety Report 9636990 (Version 1)
Quarter: 2013Q4

REPORT INFORMATION
  Report Type: Spontaneous
  Country: TW (occurrence: TW)
  Receive Date: 20131022
  Receipt Date: 20131022
  Transmission Date: 20140711
  Serious: Yes (Hospitalization)
  Sender: FDA-Public Use
  Company Number: TW-ASTRAZENECA-2013SE75616

PATIENT
  Age: 70 Year
  Sex: Female

DRUGS (1)
  1. CRESTOR [Suspect]
     Route: 048
     Dates: start: 20130812, end: 20130820

REACTIONS (4)
  - Dysphagia [Unknown]
  - Rhabdomyolysis [Unknown]
  - Asthenia [Unknown]
  - Myalgia [Unknown]
